FAERS Safety Report 4344963-1 (Version None)
Quarter: 2004Q2

REPORT INFORMATION
  Report Type: 
  Country: None (occurrence: None)
  Receive Date: 20040420
  Receipt Date: 20040405
  Transmission Date: 20050107
  Serious: Yes (Other)
  Sender: FDA-Public Use
  Company Number: USA-2004-0013494

PATIENT
  Age: 77 Year
  Sex: Male
  Weight: 79.8 kg

DRUGS (7)
  1. OXYCONTIN [Suspect]
     Indication: PAIN
     Dosage: SEE IMAGE
     Dates: start: 20030101
  2. NORCO [Suspect]
     Indication: PAIN
     Dosage: 1, Q6H, ORAL
     Route: 048
     Dates: start: 20030101
  3. NABUMETONE [Concomitant]
  4. NEURONTIN [Concomitant]
  5. SENOKOT [Concomitant]
  6. ANCEF [Concomitant]
  7. BEXTRA [Concomitant]

REACTIONS (6)
  - CONSTIPATION [None]
  - DENTAL PULP DISORDER [None]
  - DYSARTHRIA [None]
  - OSTEOMYELITIS [None]
  - SEDATION [None]
  - SOMNOLENCE [None]
